FAERS Safety Report 7306157-7 (Version None)
Quarter: 2011Q1

REPORT INFORMATION
  Report Type: 
  Country: None (occurrence: None)
  Receive Date: 20110222
  Receipt Date: 20110217
  Transmission Date: 20110831
  Serious: Yes (Hospitalization)
  Sender: FDA-Public Use
  Company Number: BR-ABBOTT-10P-020-0665303-00

PATIENT
  Sex: Female
  Weight: 72 kg

DRUGS (15)
  1. HUMIRA [Suspect]
     Dosage: 80 MG LOADING DOSE
     Route: 058
  2. PREDNISONE [Concomitant]
     Indication: PRODUCT USED FOR UNKNOWN INDICATION
     Route: 048
  3. CITALOPRAM [Concomitant]
     Indication: PRODUCT USED FOR UNKNOWN INDICATION
     Route: 048
  4. PARACETAMOL [Concomitant]
     Indication: PAIN
     Route: 048
  5. HUMIRA [Suspect]
     Indication: CROHN'S DISEASE
     Dosage: 160 MG LOADING DOSE
     Route: 058
     Dates: start: 20100601, end: 20100601
  6. CLOMIPRAMINE HCL [Concomitant]
     Indication: ANXIETY
     Route: 048
     Dates: start: 20090101
  7. OMEPRAZOLE [Concomitant]
     Indication: PROPHYLAXIS
  8. QUETIAPINE [Concomitant]
     Indication: PRODUCT USED FOR UNKNOWN INDICATION
     Route: 048
  9. ISONIAZID [Suspect]
     Indication: ANTIBIOTIC PROPHYLAXIS
     Dosage: FORM STRENGTH:  100MG / 3 TIMES EVERY 24 HOURS
     Route: 048
     Dates: start: 20100601
  10. OMEPRAZOLE [Concomitant]
     Indication: GASTRIC DISORDER
     Route: 048
  11. OMEPRAZOLE [Concomitant]
     Indication: CROHN'S DISEASE
  12. CIPROFLOXACIN [Concomitant]
     Indication: PRODUCT USED FOR UNKNOWN INDICATION
     Route: 042
  13. HUMIRA [Suspect]
     Route: 058
  14. MESALAZINE [Concomitant]
     Indication: CROHN'S DISEASE
     Route: 048
     Dates: start: 20060101
  15. AZATHIOPRINE [Concomitant]
     Indication: CROHN'S DISEASE
     Route: 048

REACTIONS (18)
  - BACK PAIN [None]
  - CONSTIPATION [None]
  - INFLUENZA [None]
  - ABDOMINAL PAIN [None]
  - HAEMATOCHEZIA [None]
  - CROHN'S DISEASE [None]
  - DIARRHOEA [None]
  - DEPRESSION [None]
  - WOUND [None]
  - ARTHRALGIA [None]
  - PAIN [None]
  - FISTULA [None]
  - RESTLESSNESS [None]
  - SKIN HAEMORRHAGE [None]
  - RETCHING [None]
  - MUSCLE SPASMS [None]
  - PAIN IN EXTREMITY [None]
  - SKIN LESION [None]
